FAERS Safety Report 23268174 (Version 2)
Quarter: 2024Q1

REPORT INFORMATION
  Report Type: Other
  Country: US (occurrence: None)
  Receive Date: 20231206
  Receipt Date: 20240123
  Transmission Date: 20240410
  Serious: Yes (Other)
  Sender: FDA-Public Use
  Company Number: US-ROCHE-3464905

PATIENT
  Age: 49 Year
  Sex: Female

DRUGS (5)
  1. OCREVUS [Suspect]
     Active Substance: OCRELIZUMAB
     Indication: Relapsing-remitting multiple sclerosis
     Route: 065
  2. TECFIDERA [Concomitant]
     Active Substance: DIMETHYL FUMARATE
  3. BETAFERON [Concomitant]
     Active Substance: INTERFERON BETA-1B
  4. AUBAGIO [Concomitant]
     Active Substance: TERIFLUNOMIDE
  5. TYSABRI [Concomitant]
     Active Substance: NATALIZUMAB

REACTIONS (8)
  - Neoplasm malignant [Unknown]
  - Diabetes mellitus [Unknown]
  - Cataract [Unknown]
  - Hypertension [Unknown]
  - Anxiety [Unknown]
  - Depression [Unknown]
  - Irritable bowel syndrome [Unknown]
  - Drug ineffective [Unknown]

NARRATIVE: CASE EVENT DATE: 20230927
